FAERS Safety Report 5558070-3 (Version None)
Quarter: 2007Q4

REPORT INFORMATION
  Report Type: 
  Country: None (occurrence: None)
  Receive Date: 20071211
  Receipt Date: 20071127
  Transmission Date: 20080405
  Serious: Yes (Hospitalization)
  Sender: FDA-Public Use
  Company Number: ENT 2007-0221

PATIENT
  Sex: Female

DRUGS (3)
  1. COMTAN [Suspect]
     Indication: PARKINSON'S DISEASE
     Dosage: 500 MG DIVIDED INTO 5 DOSES DAILY
     Route: 048
     Dates: start: 20070901
  2. CARBIDOPA AND LEVODOPA [Concomitant]
  3. PRAMIVERINE HYDROCHLORIDE [Concomitant]

REACTIONS (2)
  - SOMNOLENCE [None]
  - SUDDEN ONSET OF SLEEP [None]
